FAERS Safety Report 6158776-1 (Version None)
Quarter: 2009Q2

REPORT INFORMATION
  Report Type: 
  Country: None (occurrence: None)
  Receive Date: 20090417
  Receipt Date: 20090408
  Transmission Date: 20091009
  Serious: Yes (Hospitalization)
  Sender: FDA-Public Use
  Company Number: B0570228A

PATIENT
  Age: 50 Year
  Sex: Female

DRUGS (2)
  1. DIGOXIN [Suspect]
     Dosage: 30TAB SINGLE DOSE
  2. LEXOMIL [Suspect]
     Dosage: 30UNIT SINGLE DOSE

REACTIONS (7)
  - CIRCULATORY COLLAPSE [None]
  - HYPERKALAEMIA [None]
  - INTENTIONAL OVERDOSE [None]
  - RENAL FAILURE [None]
  - SOMNOLENCE [None]
  - THERAPEUTIC AGENT TOXICITY [None]
  - VOMITING [None]
